FAERS Safety Report 9386658 (Version 1)
Quarter: 2013Q3

REPORT INFORMATION
  Report Type: Spontaneous
  Country: US (occurrence: None)
  Receive Date: 20130703
  Receipt Date: 20130703
  Transmission Date: 20140515
  Serious: Yes (Life-Threatening)
  Sender: FDA-Public Use
  Company Number: None

PATIENT
  Age: 11 Year
  Sex: Female
  Weight: 47.1 kg

DRUGS (1)
  1. ONCASPAR [Suspect]

REACTIONS (9)
  - Infusion related reaction [None]
  - Feeling abnormal [None]
  - Dyspnoea [None]
  - Heart rate increased [None]
  - Nausea [None]
  - Vomiting [None]
  - Depressed level of consciousness [None]
  - Anaphylactic reaction [None]
  - Blood pressure decreased [None]
